FAERS Safety Report 15232363 (Version 1)
Quarter: 2018Q4

REPORT INFORMATION
  Report Type: Spontaneous
  Country: NL (occurrence: NL)
  Receive Date: 20180802
  Receipt Date: 20180802
  Transmission Date: 20190204
  Serious: Yes (Other)
  Sender: FDA-Public Use
  Company Number: NL-TEVA-2018-NL-933529

PATIENT
  Age: 73 Year
  Sex: Female

DRUGS (5)
  1. METOCLOPRAMIDE TABLET, 10 MG (MILLIGRAM) [Suspect]
     Active Substance: METOCLOPRAMIDE
     Indication: NAUSEA
     Dosage: 10 MILLIGRAM DAILY; 2-3 X PER DAY IF NECESSARY 1 TABLET
     Dates: start: 20180613, end: 20180614
  2. MAGNESIUMHYDROXIDE 724MG [Concomitant]
     Dosage: 2DD1
  3. ACENOCOUMAROL [Concomitant]
     Active Substance: ACENOCOUMAROL
     Route: 065
  4. FLECA?NIDE 100 MG [Concomitant]
     Dosage: 1Z1T
  5. FLECA?NIDE RETARD 150 MG [Concomitant]
     Dosage: 150 MILLIGRAM DAILY; 1DD1

REACTIONS (1)
  - Monoplegia [Recovered/Resolved]

NARRATIVE: CASE EVENT DATE: 20180613
